FAERS Safety Report 24213083 (Version 1)
Quarter: 2024Q3

REPORT INFORMATION
  Report Type: Report from Study
  Country: BR (occurrence: BR)
  Receive Date: 20240815
  Receipt Date: 20240815
  Transmission Date: 20241017
  Serious: Yes (Disabling)
  Sender: TAKEDA
  Company Number: BR-TAKEDA-2024TUS081269

PATIENT
  Sex: Male

DRUGS (1)
  1. HEMO-8R [Suspect]
     Active Substance: ANTIHEMOPHILIC FACTOR, HUMAN RECOMBINANT
     Indication: Factor VIII deficiency
     Dosage: UNK
     Route: 042

REACTIONS (4)
  - Ligament sprain [Not Recovered/Not Resolved]
  - Product use issue [Unknown]
  - Joint swelling [Recovering/Resolving]
  - Limb injury [Recovering/Resolving]
